FAERS Safety Report 11868962 (Version 1)
Quarter: 2015Q4

REPORT INFORMATION
  Report Type: Report from Study
  Country: US (occurrence: US)
  Receive Date: 20151225
  Receipt Date: 20151225
  Transmission Date: 20160305
  Serious: No
  Sender: FDA-Public Use
  Company Number: PHEH2015US026793

PATIENT
  Sex: Female

DRUGS (1)
  1. COSENTYX [Suspect]
     Active Substance: SECUKINUMAB
     Indication: PSORIASIS
     Dosage: 300 MG, QW
     Route: 058
     Dates: start: 20151126, end: 20151218

REACTIONS (10)
  - Pain in extremity [Unknown]
  - Musculoskeletal pain [Unknown]
  - Fatigue [Unknown]
  - Arthralgia [Unknown]
  - Lip swelling [Unknown]
  - Swollen tongue [Unknown]
  - Nausea [Unknown]
  - Diarrhoea [Unknown]
  - Eyelid oedema [Unknown]
  - Back pain [Unknown]
